FAERS Safety Report 7926569-8 (Version None)
Quarter: 2011Q4

REPORT INFORMATION
  Report Type: 
  Country: None (occurrence: None)
  Receive Date: 20111118
  Receipt Date: 20111116
  Transmission Date: 20120403
  Serious: No
  Sender: FDA-Public Use
  Company Number: US-BIOGENIDEC-2011BI043853

PATIENT
  Age: 54 Year
  Sex: Female

DRUGS (4)
  1. AVONEX [Concomitant]
     Route: 030
  2. TYSABRI [Suspect]
     Route: 042
     Dates: start: 20080204, end: 20100330
  3. TYSABRI [Suspect]
     Indication: MULTIPLE SCLEROSIS
     Route: 042
     Dates: start: 20110713
  4. AVONEX [Concomitant]
     Indication: MULTIPLE SCLEROSIS
     Route: 030
     Dates: start: 20100701

REACTIONS (1)
  - JOINT STIFFNESS [None]
